FAERS Safety Report 18326294 (Version 1)
Quarter: 2020Q3

REPORT INFORMATION
  Report Type: Spontaneous
  Country: US (occurrence: US)
  Receive Date: 20200929
  Receipt Date: 20200929
  Transmission Date: 20201103
  Serious: Yes (Other)
  Sender: FDA-Public Use
  Company Number: US-SA-2020SA266174

PATIENT

DRUGS (6)
  1. ALBUTEROL SULFATE. [Concomitant]
     Active Substance: ALBUTEROL SULFATE
  2. GLIMEPIRIDE. [Concomitant]
     Active Substance: GLIMEPIRIDE
  3. DUPIXENT [Suspect]
     Active Substance: DUPILUMAB
     Indication: NASAL POLYPS
     Dosage: 300 MG, QOW
     Route: 058
  4. TRULICITY [Concomitant]
     Active Substance: DULAGLUTIDE
  5. CLARITIN?D NOS [Concomitant]
     Active Substance: LORATADINE\PSEUDOEPHEDRINE SULFATE
     Dosage: UNK UNK, Q12H
  6. LORATADINE D [Concomitant]
     Active Substance: LORATADINE\PSEUDOEPHEDRINE SULFATE
     Dosage: UNK UNK, QD

REACTIONS (8)
  - Abdominal distension [Unknown]
  - Blood glucose abnormal [Unknown]
  - Dyspepsia [Unknown]
  - Eating disorder [Unknown]
  - Decreased appetite [Unknown]
  - Illness [Unknown]
  - Impaired gastric emptying [Unknown]
  - Diarrhoea [Unknown]
